FAERS Safety Report 8962359 (Version 2)
Quarter: 2012Q4

REPORT INFORMATION
  Report Type: Spontaneous
  Country: US (occurrence: None)
  Receive Date: 20120830
  Receipt Date: 20120917
  Transmission Date: 20130627
  Serious: Yes (Other)
  Sender: FDA-Public Use
  Company Number: US-1193784

PATIENT
  Age: 72 Year
  Sex: Female

DRUGS (4)
  1. BSS [Suspect]
     Indication: INTRAOCULAR LENS IMPLANT
     Route: 031
     Dates: start: 2012, end: 2012
  2. CYCLOGYL [Suspect]
     Indication: INTRAOCULAR LENS IMPLANT
     Route: 047
     Dates: start: 2012, end: 2012
  3. BETADINE [Concomitant]
     Dates: start: 2012, end: 2012
  4. ANESTHETICS [Concomitant]
     Dates: start: 2012, end: 2012

REACTIONS (3)
  - Endophthalmitis [None]
  - Intraocular pressure increased [None]
  - Drug effect decreased [None]
